FAERS Safety Report 4833967-8 (Version None)
Quarter: 2005Q4

REPORT INFORMATION
  Report Type: 
  Country: None (occurrence: None)
  Receive Date: 20051118
  Receipt Date: 20051118
  Transmission Date: 20060501
  Serious: Yes (Other)
  Sender: FDA-Public Use
  Company Number: None

PATIENT
  Age: 58 Year
  Sex: Male
  Weight: 83.2 kg

DRUGS (1)
  1. RAMIPRIL [Suspect]

REACTIONS (1)
  - DIARRHOEA [None]
